FAERS Safety Report 22215819 (Version 1)
Quarter: 2023Q2

REPORT INFORMATION
  Report Type: Spontaneous
  Country: US (occurrence: None)
  Receive Date: 20230417
  Receipt Date: 20230417
  Transmission Date: 20230722
  Serious: No
  Sender: FDA-Public Use
  Company Number: 2023A085380

PATIENT
  Age: 65 Year

DRUGS (2)
  1. DALIRESP [Suspect]
     Active Substance: ROFLUMILAST
     Route: 048
     Dates: start: 20230322
  2. DALIRESP [Suspect]
     Active Substance: ROFLUMILAST
     Route: 048

REACTIONS (4)
  - Abdominal discomfort [Recovering/Resolving]
  - Weight decreased [Recovering/Resolving]
  - Diarrhoea [Recovering/Resolving]
  - Product prescribing issue [Recovered/Resolved]

NARRATIVE: CASE EVENT DATE: 20230101
